FAERS Safety Report 9419112 (Version 2)
Quarter: 2013Q3

REPORT INFORMATION
  Report Type: Spontaneous
  Country: US (occurrence: US)
  Receive Date: 20130725
  Receipt Date: 20130809
  Transmission Date: 20140515
  Serious: Yes (Hospitalization, Other)
  Sender: FDA-Public Use
  Company Number: US-ASTELLAS-2013US007729

PATIENT
  Age: 65 Year
  Sex: Male

DRUGS (2)
  1. XTANDI [Suspect]
     Indication: PROSTATE CANCER
     Dosage: 160 MG, UID/QD
     Route: 048
     Dates: start: 20130429
  2. XTANDI [Suspect]
     Dosage: 40 MG, QID
     Route: 048

REACTIONS (5)
  - Inappropriate schedule of drug administration [Recovered/Resolved]
  - Dyspnoea [Unknown]
  - Blood potassium decreased [Unknown]
  - Nasopharyngitis [Unknown]
  - Knee arthroplasty [Unknown]
